FAERS Safety Report 7842055-8 (Version None)
Quarter: 2011Q4

REPORT INFORMATION
  Report Type: 
  Country: None (occurrence: None)
  Receive Date: 20111019
  Receipt Date: 20111011
  Transmission Date: 20120403
  Serious: Yes (Other)
  Sender: FDA-Public Use
  Company Number: 2011SP048412

PATIENT
  Age: 32 Year
  Sex: Female
  Weight: 55 kg

DRUGS (1)
  1. NUVARING [Suspect]
     Indication: CONTRACEPTION
     Dosage: QM;VAG
     Route: 067
     Dates: start: 20100401, end: 20111008

REACTIONS (4)
  - HYPOTHYROIDISM [None]
  - ABNORMAL WITHDRAWAL BLEEDING [None]
  - PYELONEPHRITIS ACUTE [None]
  - INCORRECT DRUG ADMINISTRATION DURATION [None]
